FAERS Safety Report 6233747-5 (Version None)
Quarter: 2009Q2

REPORT INFORMATION
  Report Type: 
  Country: None (occurrence: None)
  Receive Date: 20090618
  Receipt Date: 20070523
  Transmission Date: 20091009
  Serious: Yes (Disabling, Other)
  Sender: FDA-Public Use
  Company Number: US-ASTRAZENECA-2005UW11955

PATIENT
  Age: 382 Month
  Sex: Male
  Weight: 107 kg

DRUGS (40)
  1. SEROQUEL [Suspect]
     Indication: BIPOLAR DISORDER
     Dosage: 100 - 300 MG DAILY
     Route: 048
     Dates: start: 20030611
  2. SEROQUEL [Suspect]
     Indication: SLEEP DISORDER
     Dosage: 100 - 300 MG DAILY
     Route: 048
     Dates: start: 20030611
  3. SEROQUEL [Suspect]
     Route: 048
     Dates: start: 20031101
  4. SEROQUEL [Suspect]
     Route: 048
     Dates: start: 20031101
  5. RISPERDAL [Suspect]
     Dates: start: 20030801, end: 20030901
  6. RISPERDAL [Suspect]
     Dates: start: 20030804
  7. ZYPREXA [Suspect]
     Indication: SLEEP DISORDER
     Dates: start: 20020101, end: 20030101
  8. ZYPREXA [Suspect]
     Dates: start: 20020924
  9. LEXAPRO [Concomitant]
  10. LEXAPRO [Concomitant]
     Dosage: 15 - 20 MG DAILY
     Dates: start: 20040415
  11. XANAX [Concomitant]
  12. XANAX [Concomitant]
     Dates: start: 20031021
  13. ZOCOR [Concomitant]
  14. ZOCOR [Concomitant]
     Dosage: 20 - 80 MG DAILY
     Dates: start: 20020408
  15. AVANDAMET [Concomitant]
     Dosage: 4/500 MG BID
  16. TRAZODONE HCL [Concomitant]
  17. PAXIL [Concomitant]
  18. PAXIL [Concomitant]
     Dates: start: 20060227
  19. DEPAKOTE ER [Concomitant]
  20. DEPAKOTE ER [Concomitant]
     Dates: start: 20030925
  21. LAMICTAL [Concomitant]
  22. LAMICTAL [Concomitant]
     Dates: start: 20030111
  23. EFFEXOR XR [Concomitant]
  24. EFFEXOR XR [Concomitant]
     Dosage: STRENGTH 75 - 150 MG
     Dates: start: 20030925
  25. REMERON [Concomitant]
  26. REMERON [Concomitant]
     Dates: start: 20030925
  27. HYDROXYZINE HCL [Concomitant]
  28. ZOLOFT [Concomitant]
     Dates: start: 20020101
  29. PROZAC [Concomitant]
  30. VALIUM [Concomitant]
  31. NEURONTIN [Concomitant]
     Dosage: 100 - 900 MG DAILY
     Dates: start: 20050525
  32. PAMELOR [Concomitant]
     Dates: start: 20041115
  33. WELLBUTRIN [Concomitant]
     Dates: start: 20050215
  34. TOFRANIL [Concomitant]
     Dates: start: 20050906
  35. FLOMAX [Concomitant]
     Dates: start: 20060227
  36. HYDROCODONE BITARTRATE [Concomitant]
  37. KLONOPIN [Concomitant]
     Dates: start: 20040712
  38. VISTARIL [Concomitant]
     Dates: start: 20040707
  39. AMBIEN [Concomitant]
     Dates: start: 20040112
  40. RESTORIL [Concomitant]
     Dates: start: 20040602

REACTIONS (13)
  - CARPAL TUNNEL SYNDROME [None]
  - DIABETIC NEUROPATHY [None]
  - EYE INJURY [None]
  - FATIGUE [None]
  - HEPATIC ENZYME INCREASED [None]
  - HYPOAESTHESIA [None]
  - IRRITABILITY [None]
  - NEUROPATHY PERIPHERAL [None]
  - PARAESTHESIA [None]
  - SELF-INJURIOUS IDEATION [None]
  - TONSILLITIS [None]
  - TYPE 2 DIABETES MELLITUS [None]
  - WEIGHT INCREASED [None]
